FAERS Safety Report 10457066 (Version 1)
Quarter: 2014Q3

REPORT INFORMATION
  Report Type: Report from Study
  Country: NL (occurrence: NL)
  Receive Date: 20140916
  Receipt Date: 20140916
  Transmission Date: 20150326
  Serious: Yes (Death)
  Sender: FDA-Public Use
  Company Number: NL-ACTELION-A-CH2014-105047

PATIENT
  Age: 75 Year
  Sex: Male
  Weight: 107 kg

DRUGS (2)
  1. TRACLEER [Suspect]
     Active Substance: BOSENTAN\BOSENTAN MONOHYDRATE
     Dosage: 62.5 MG, BID
     Route: 048
     Dates: start: 20080527, end: 20090107
  2. TRACLEER [Suspect]
     Active Substance: BOSENTAN\BOSENTAN MONOHYDRATE
     Indication: SCLERODERMA ASSOCIATED DIGITAL ULCER
     Dosage: 125 MG, BID
     Route: 048
     Dates: start: 20090108, end: 20140329

REACTIONS (2)
  - Death [Fatal]
  - Malaise [Unknown]

NARRATIVE: CASE EVENT DATE: 20131210
